FAERS Safety Report 22165062 (Version 1)
Quarter: 2023Q2

REPORT INFORMATION
  Report Type: Spontaneous
  Country: None (occurrence: IT)
  Receive Date: 20230403
  Receipt Date: 20230403
  Transmission Date: 20230722
  Serious: Yes (Hospitalization)
  Sender: FDA-Public Use
  Company Number: IT-Oxford Pharmaceuticals, LLC-2139821

PATIENT
  Age: 8 Year
  Sex: Female
  Weight: 22 kg

DRUGS (2)
  1. BACLOFEN [Suspect]
     Active Substance: BACLOFEN
     Indication: Cerebral palsy
     Route: 037
  2. CARBAMAZEPINE [Concomitant]
     Active Substance: CARBAMAZEPINE

REACTIONS (5)
  - Dysphagia [Recovering/Resolving]
  - Somnolence [Recovering/Resolving]
  - Electroencephalogram abnormal [Recovered/Resolved]
  - Vomiting [Recovering/Resolving]
  - Product use in unapproved indication [Unknown]
